FAERS Safety Report 19447889 (Version 4)
Quarter: 2023Q1

REPORT INFORMATION
  Report Type: Report from Study
  Country: IL (occurrence: IL)
  Receive Date: 20210622
  Receipt Date: 20230316
  Transmission Date: 20230417
  Serious: Yes (Death, Other)
  Sender: FDA-Public Use
  Company Number: IL-ABBVIE-20K-082-3347424-00

PATIENT
  Age: 80 Year
  Sex: Male
  Weight: 77 kg

DRUGS (40)
  1. VENETOCLAX [Suspect]
     Active Substance: VENETOCLAX
     Indication: Acute myeloid leukaemia
     Dosage: RAMP UP
     Route: 048
     Dates: start: 20200117, end: 20200117
  2. VENETOCLAX [Suspect]
     Active Substance: VENETOCLAX
     Indication: Acute myeloid leukaemia
     Dosage: RAMP UP
     Route: 048
     Dates: start: 20200214, end: 20200306
  3. VENETOCLAX [Suspect]
     Active Substance: VENETOCLAX
     Indication: Acute myeloid leukaemia
     Dosage: RAMP UP, MODIFICATION TO THE DAILY DOSE
     Route: 048
     Dates: start: 20200127, end: 20200213
  4. VENETOCLAX [Suspect]
     Active Substance: VENETOCLAX
     Indication: Acute myeloid leukaemia
     Dosage: MODIFICATION TO THE DAILY DOSE?INTERRUPTION :COUNT RECOVERY
     Route: 048
     Dates: start: 20200315, end: 20200405
  5. VENETOCLAX [Suspect]
     Active Substance: VENETOCLAX
     Indication: Acute myeloid leukaemia
     Dosage: 400 MILLIGRAM
     Route: 048
     Dates: start: 20200214, end: 20200412
  6. VENETOCLAX [Suspect]
     Active Substance: VENETOCLAX
     Indication: Acute myeloid leukaemia
     Dosage: 400 MILLIGRAM
     Route: 048
     Dates: start: 20200419, end: 20200510
  7. VENETOCLAX [Suspect]
     Active Substance: VENETOCLAX
     Indication: Acute myeloid leukaemia
     Dosage: 400 MILLIGRAM
     Route: 048
     Dates: start: 20200517, end: 20200607
  8. VENETOCLAX [Suspect]
     Active Substance: VENETOCLAX
     Indication: Acute myeloid leukaemia
     Dosage: 400 MILLIGRAM
     Route: 048
     Dates: start: 20200614, end: 20200705
  9. VENETOCLAX [Suspect]
     Active Substance: VENETOCLAX
     Indication: Acute myeloid leukaemia
     Dosage: 400 MILLIGRAM?DISCONTINUATION-PROGRESSION OF DISEASE
     Route: 048
     Dates: start: 20200712, end: 20200802
  10. VENETOCLAX [Suspect]
     Active Substance: VENETOCLAX
     Indication: Acute myeloid leukaemia
     Dosage: 400 MILLIGRAM
     Route: 048
     Dates: start: 20200816, end: 20200906
  11. VENETOCLAX [Suspect]
     Active Substance: VENETOCLAX
     Indication: Acute myeloid leukaemia
     Dosage: RAMP UP
     Route: 048
     Dates: start: 20200929
  12. AZACITIDINE [Suspect]
     Active Substance: AZACITIDINE
     Indication: Acute myeloid leukaemia
     Dosage: CYCLE 1
     Route: 058
     Dates: start: 20200213, end: 20200219
  13. AZACITIDINE [Suspect]
     Active Substance: AZACITIDINE
     Indication: Acute myeloid leukaemia
     Dosage: CYCLE 8
     Route: 058
     Dates: start: 20200816, end: 20200820
  14. AZACITIDINE [Suspect]
     Active Substance: AZACITIDINE
     Indication: Acute myeloid leukaemia
     Dosage: 134 MILLIGRAM?CYCLE 2
     Route: 058
     Dates: start: 20200322, end: 20200323
  15. AZACITIDINE [Suspect]
     Active Substance: AZACITIDINE
     Indication: Acute myeloid leukaemia
     Dosage: CYCLE 6
     Route: 058
     Dates: start: 20200621, end: 20200622
  16. AZACITIDINE [Suspect]
     Active Substance: AZACITIDINE
     Indication: Acute myeloid leukaemia
     Dosage: 148 MILLIGRAM?CYCLE 8
     Route: 058
     Dates: start: 20200823, end: 20200824
  17. AZACITIDINE [Suspect]
     Active Substance: AZACITIDINE
     Indication: Acute myeloid leukaemia
     Dosage: 145 MILLIGRAM?CYCLE 4
     Route: 058
     Dates: start: 20200524, end: 20200525
  18. AZACITIDINE [Suspect]
     Active Substance: AZACITIDINE
     Indication: Acute myeloid leukaemia
     Dosage: 148 MILLIGRAM?CYCLE 7
     Route: 058
     Dates: start: 20200719, end: 20200720
  19. AZACITIDINE [Suspect]
     Active Substance: AZACITIDINE
     Indication: Acute myeloid leukaemia
     Dosage: 141 MILLIGRAM?CYCLE 3
     Route: 058
     Dates: start: 20200419, end: 20200423
  20. AZACITIDINE [Suspect]
     Active Substance: AZACITIDINE
     Indication: Acute myeloid leukaemia
     Dosage: 148 MILLIGRAM?CYCLE 5
     Route: 058
     Dates: start: 20200614, end: 20200618
  21. AZACITIDINE [Suspect]
     Active Substance: AZACITIDINE
     Indication: Acute myeloid leukaemia
     Dosage: 148 MILLIGRAM?CYCLE 7
     Route: 058
     Dates: start: 20200712, end: 20200716
  22. HYDREA [Suspect]
     Active Substance: HYDROXYUREA
     Indication: Acute myeloid leukaemia
     Route: 048
     Dates: start: 20200116, end: 20200116
  23. CYTARABINE [Suspect]
     Active Substance: CYTARABINE
     Indication: Acute myeloid leukaemia
     Dosage: 100 MG/M2?FREQUENCY TEXT: QD
     Route: 042
     Dates: start: 20201001, end: 20201007
  24. GEMTUZUMAB OZOGAMICIN [Suspect]
     Active Substance: GEMTUZUMAB OZOGAMICIN
     Indication: Acute myeloid leukaemia
     Dosage: 100 MG/M2?FREQUENCY TEXT: QD
     Route: 042
     Dates: start: 20201007, end: 20201007
  25. PIPERACILLIN SODIUM\TAZOBACTAM SODIUM [Concomitant]
     Active Substance: PIPERACILLIN SODIUM\TAZOBACTAM SODIUM
     Indication: Pneumonia
     Dates: start: 20200105, end: 20200129
  26. ARANESP [Concomitant]
     Active Substance: DARBEPOETIN ALFA
     Indication: Anaemia
  27. ASPIRIN [Concomitant]
     Active Substance: ASPIRIN
     Indication: Cardiac disorder
     Dates: start: 2016
  28. BETACORTEN [Concomitant]
     Indication: Rash
  29. CALTRATE [Concomitant]
     Active Substance: CALCIUM CARBONATE
     Indication: Blood phosphorus increased
  30. BISOPROLOL FUMARATE [Concomitant]
     Active Substance: BISOPROLOL FUMARATE
     Indication: Cardiac disorder
     Dates: start: 2016
  31. FOSAVANCE [Concomitant]
     Active Substance: ALENDRONATE SODIUM\CHOLECALCIFEROL
     Indication: Osteoporosis
  32. LIPITOR [Concomitant]
     Active Substance: ATORVASTATIN CALCIUM
     Indication: Cardiovascular event prophylaxis
     Dates: start: 2016
  33. TAMSULOSIN HYDROCHLORIDE [Concomitant]
     Active Substance: TAMSULOSIN HYDROCHLORIDE
     Indication: Benign prostatic hyperplasia
  34. ALDORIL [Concomitant]
     Active Substance: HYDROCHLOROTHIAZIDE\METHYLDOPA
     Indication: Prophylaxis
     Dates: start: 20200116, end: 20200130
  35. NEOBLOC [Concomitant]
     Indication: Cardiac disorder
     Dates: start: 20200116
  36. CIPRODEX [Concomitant]
     Active Substance: CIPROFLOXACIN HYDROCHLORIDE\DEXAMETHASONE
     Indication: Prophylaxis
     Dates: start: 20200130
  37. ENOXAPARIN SODIUM [Concomitant]
     Active Substance: ENOXAPARIN SODIUM
     Indication: Cardiovascular event prophylaxis
     Dates: start: 20200211
  38. GASTRO [Concomitant]
     Indication: Hyperchlorhydria
     Dates: start: 20200116
  39. Procor [Concomitant]
     Indication: Atrial flutter
     Dates: start: 20200217
  40. FOSRENOL [Concomitant]
     Active Substance: LANTHANUM CARBONATE
     Indication: Hyperphosphataemia
     Dates: start: 20200221

REACTIONS (19)
  - Disease progression [Fatal]
  - Tumour lysis syndrome [Unknown]
  - Oedema peripheral [Not Recovered/Not Resolved]
  - Anal incontinence [Not Recovered/Not Resolved]
  - Atrial flutter [Recovered/Resolved]
  - Pharyngitis [Recovered/Resolved]
  - Angina pectoris [Recovered/Resolved]
  - Hypoalbuminaemia [Recovered/Resolved]
  - Hypomagnesaemia [Recovered/Resolved]
  - Angina pectoris [Recovered/Resolved]
  - Angina pectoris [Recovered/Resolved]
  - Chest pain [Recovered/Resolved]
  - Hyperkalaemia [Recovered/Resolved]
  - Chills [Recovered/Resolved]
  - Hyperkalaemia [Recovered/Resolved]
  - Oropharyngeal pain [Not Recovered/Not Resolved]
  - Constipation [Recovered/Resolved]
  - Epistaxis [Recovered/Resolved]
  - Diarrhoea [Recovered/Resolved]

NARRATIVE: CASE EVENT DATE: 20200119
